FAERS Safety Report 17119979 (Version 2)
Quarter: 2019Q4

REPORT INFORMATION
  Report Type: Spontaneous
  Country: AT (occurrence: AT)
  Receive Date: 20191206
  Receipt Date: 20191219
  Transmission Date: 20200122
  Serious: Yes (Other)
  Sender: FDA-Public Use
  Company Number: AT-TEVA-2019-AT-1146796

PATIENT
  Age: 48 Year
  Sex: Female

DRUGS (2)
  1. ALENDRONS?URE ARCANA 70 MG-EINMAL W?CHENTLICH-TABLETTEN [Suspect]
     Active Substance: ALENDRONATE SODIUM
     Dosage: 10 MILLIGRAM DAILY; 70 MG ONCE A WEEK
     Route: 048
     Dates: start: 20170623
  2. CIPRALEX 10 MG FILMTABLETTEN [Concomitant]
     Indication: DEPRESSION
     Route: 048

REACTIONS (2)
  - Osteonecrosis of jaw [Not Recovered/Not Resolved]
  - Dental prosthesis placement [Unknown]

NARRATIVE: CASE EVENT DATE: 2017
